FAERS Safety Report 7418026-2 (Version None)
Quarter: 2011Q2

REPORT INFORMATION
  Report Type: 
  Country: None (occurrence: None)
  Receive Date: 20110415
  Receipt Date: 20110408
  Transmission Date: 20111010
  Serious: Yes (Other)
  Sender: FDA-Public Use
  Company Number: FR-KINGPHARMUSA00001-K201100424

PATIENT
  Age: 55 Year
  Sex: Female

DRUGS (6)
  1. ALTACE [Suspect]
     Dosage: 10 MG, DAILY
     Route: 048
     Dates: start: 20030101
  2. FLUDEX [Suspect]
     Dosage: 1.5 MG, DAILY
     Route: 048
     Dates: start: 20030101
  3. DAFALGAN CODEINE [Suspect]
     Dosage: UNKNOWN
     Route: 048
     Dates: start: 20030101
  4. ESTRADIOL [Suspect]
     Dosage: UNK
     Route: 065
     Dates: start: 20030101
  5. MEDIATOR [Suspect]
     Indication: WEIGHT DECREASED
     Dosage: 1 DF, 3 TIMES A DAY
     Route: 048
     Dates: start: 20020717, end: 20030515
  6. UTROGESTAN [Suspect]
     Dosage: UNKNOWN
     Route: 065
     Dates: start: 20030101

REACTIONS (2)
  - MITRAL VALVE DISEASE [None]
  - AORTIC VALVE DISEASE [None]
